FAERS Safety Report 5169164-9 (Version None)
Quarter: 2006Q4

REPORT INFORMATION
  Report Type: 
  Country: None (occurrence: None)
  Receive Date: 20061204
  Receipt Date: 20061122
  Transmission Date: 20070319
  Serious: Yes (Death, Other)
  Sender: FDA-Public Use
  Company Number: 2006144770

PATIENT
  Age: 55 Year
  Sex: Male
  Weight: 58.9676 kg

DRUGS (5)
  1. SUTENT [Suspect]
     Indication: RENAL CELL CARCINOMA STAGE UNSPECIFIED
     Dosage: 50 MG 950 MG, 1 IN 1 D)
     Dates: start: 20060713, end: 20061117
  2. COREG [Concomitant]
  3. LIPITOR [Concomitant]
  4. LISINOPRIL [Concomitant]
  5. PREVACID [Concomitant]

REACTIONS (6)
  - BLOOD CALCIUM DECREASED [None]
  - BLOOD POTASSIUM DECREASED [None]
  - HAEMORRHAGE [None]
  - MALIGNANT NEOPLASM PROGRESSION [None]
  - METASTASES TO CENTRAL NERVOUS SYSTEM [None]
  - WHITE BLOOD CELL COUNT DECREASED [None]
